FAERS Safety Report 12806329 (Version 1)
Quarter: 2016Q4

REPORT INFORMATION
  Report Type: Spontaneous
  Country: US (occurrence: US)
  Receive Date: 20161003
  Receipt Date: 20161003
  Transmission Date: 20170207
  Serious: No
  Sender: FDA-Public Use
  Company Number: None

PATIENT

DRUGS (1)
  1. NITROFURANTOIN MACROCRYSTALS [Suspect]
     Active Substance: NITROFURANTOIN
     Route: 048

REACTIONS (5)
  - Incorrect product storage [None]
  - Incorrect drug dosage form administered [None]
  - Product name confusion [None]
  - Transcription medication error [None]
  - Drug dispensing error [None]

NARRATIVE: CASE EVENT DATE: 20160201
